FAERS Safety Report 8311227-0 (Version None)
Quarter: 2012Q2

REPORT INFORMATION
  Report Type: 
  Country: None (occurrence: None)
  Receive Date: 20120425
  Receipt Date: 20120416
  Transmission Date: 20120825
  Serious: Yes (Hospitalization, Disabling, Other)
  Sender: FDA-Public Use
  Company Number: US-ASTRAZENECA-2010SE23077

PATIENT
  Age: 24506 Day
  Sex: Female
  Weight: 77.1 kg

DRUGS (6)
  1. ATENOLOL [Concomitant]
  2. PLAVIX [Concomitant]
  3. ATIVAN [Concomitant]
  4. PROTONICS [Concomitant]
  5. CRESTOR [Suspect]
     Indication: HYPERCHOLESTEROLAEMIA
     Route: 048
  6. AMBIEN CR [Concomitant]

REACTIONS (4)
  - AREFLEXIA [None]
  - AMNESIA [None]
  - INTENTIONAL DRUG MISUSE [None]
  - ISCHAEMIC STROKE [None]
